FAERS Safety Report 9903554 (Version 2)
Quarter: 2014Q3

REPORT INFORMATION
  Report Type: Spontaneous
  Country: US (occurrence: US)
  Receive Date: 20140217
  Receipt Date: 20140814
  Transmission Date: 20150326
  Serious: Yes (Hospitalization, Disabling, Other)
  Sender: FDA-Public Use
  Company Number: US-009507513-1402USA006451

PATIENT
  Sex: Female

DRUGS (1)
  1. NUVARING [Suspect]
     Active Substance: ETHINYL ESTRADIOL\ETONOGESTREL
     Indication: PRODUCT USED FOR UNKNOWN INDICATION
     Dosage: 0.12-0.015 MG / 24 HR, PLACE 1 EACH VAGINALLY
     Route: 067
     Dates: start: 20120706, end: 20121020

REACTIONS (13)
  - Procedural nausea [Unknown]
  - Procedural vomiting [Unknown]
  - Peripheral swelling [Unknown]
  - Pain [Not Recovered/Not Resolved]
  - Insomnia [Unknown]
  - Anaemia [Unknown]
  - Anaesthetic complication [Unknown]
  - Hepatic cirrhosis [Unknown]
  - Catheter site haemorrhage [Unknown]
  - Haemorrhagic disorder [Unknown]
  - Paranasal sinus mucosal hypertrophy [Unknown]
  - Cerebrovascular accident [Unknown]
  - Sinus polyp [Unknown]

NARRATIVE: CASE EVENT DATE: 201210
